FAERS Safety Report 23976237 (Version 2)
Quarter: 2024Q2

REPORT INFORMATION
  Report Type: Report from Study
  Country: US (occurrence: US)
  Receive Date: 20240614
  Receipt Date: 20240625
  Transmission Date: 20240716
  Serious: No
  Sender: FDA-Public Use
  Company Number: US-002147023-NVSC2024US125061

PATIENT
  Sex: Male

DRUGS (1)
  1. LEQVIO [Suspect]
     Active Substance: INCLISIRAN SODIUM
     Indication: Product used for unknown indication
     Dosage: UNK
     Route: 058

REACTIONS (6)
  - Cough [Recovering/Resolving]
  - COVID-19 [Recovering/Resolving]
  - Throat irritation [Recovering/Resolving]
  - Bronchitis [Recovering/Resolving]
  - Sinusitis [Unknown]
  - Hypersensitivity [Unknown]
